FAERS Safety Report 26022862 (Version 2)
Quarter: 2025Q4

REPORT INFORMATION
  Report Type: Spontaneous
  Country: US (occurrence: US)
  Receive Date: 20251110
  Receipt Date: 20251118
  Transmission Date: 20260117
  Serious: Yes (Life-Threatening, Hospitalization, Other)
  Sender: IOVANCE BIOTHERAPEUTICS MANUFACTURING LLC
  Company Number: US-IOVANCE BIOTHERAPEUTICS INC.-IOV2025000087

PATIENT

DRUGS (8)
  1. ALDESLEUKIN [Suspect]
     Active Substance: ALDESLEUKIN
     Indication: Metastatic malignant melanoma
     Dosage: 55 MILLION UNITS INITIALLY, ONCE
     Route: 042
     Dates: start: 20250520, end: 20250521
  2. ALDESLEUKIN [Suspect]
     Active Substance: ALDESLEUKIN
     Dosage: 44 MILLION UNITS INITIALLY, Q8H
     Route: 042
     Dates: start: 20250520, end: 20250521
  3. FLUDARABINE [Suspect]
     Active Substance: FLUDARABINE PHOSPHATE
     Indication: Metastatic malignant melanoma
     Dosage: 20 MG/M2 (1.92 M2) = 37.5 MG (ROUNDED),ONCE DAILY
     Route: 042
     Dates: start: 20250514, end: 20250518
  4. CYCLOPHOSPHAMIDE [Suspect]
     Active Substance: CYCLOPHOSPHAMIDE
     Indication: Metastatic malignant melanoma
     Dosage: 60 MG/KG (80.3 KG) = 4,820 MG (ROUNDED), ONCE DAILY
     Route: 042
     Dates: start: 20250512, end: 20250513
  5. AMTAGVI [Suspect]
     Active Substance: LIFILEUCEL
     Indication: Metastatic malignant melanoma
     Dosage: 1 DOSAGE FORM, ONCE
     Route: 042
     Dates: start: 20250519, end: 20250519
  6. VALACYCLOVIR [Concomitant]
     Active Substance: VALACYCLOVIR HYDROCHLORIDE
     Indication: Product used for unknown indication
     Route: 065
  7. MOXIFLOXACIN [Concomitant]
     Active Substance: MOXIFLOXACIN
     Indication: Product used for unknown indication
     Route: 065
  8. SULFAMETHOXAZOLE\TRIMETHOPRIM [Concomitant]
     Active Substance: SULFAMETHOXAZOLE\TRIMETHOPRIM
     Indication: Product used for unknown indication
     Route: 065

REACTIONS (15)
  - Bone marrow failure [Not Recovered/Not Resolved]
  - Illness [Recovered/Resolved]
  - Gait inability [Recovered/Resolved]
  - Presyncope [Recovered/Resolved]
  - Cytomegalovirus viraemia [Recovered/Resolved]
  - Blood erythropoietin increased [Not Recovered/Not Resolved]
  - Serum ferritin increased [Not Recovered/Not Resolved]
  - Immature platelet fraction decreased [Not Recovered/Not Resolved]
  - Reticulocyte count decreased [Recovered/Resolved]
  - Loss of consciousness [Recovered/Resolved]
  - Cytopenia [Not Recovered/Not Resolved]
  - Confusional state [Recovered/Resolved]
  - Pallor [Recovered/Resolved]
  - Anaemia [Not Recovered/Not Resolved]
  - Aplastic anaemia [Not Recovered/Not Resolved]

NARRATIVE: CASE EVENT DATE: 20250101
